FAERS Safety Report 7588099-5 (Version None)
Quarter: 2011Q3

REPORT INFORMATION
  Report Type: 
  Country: None (occurrence: None)
  Receive Date: 20110705
  Receipt Date: 20110630
  Transmission Date: 20111222
  Serious: No
  Sender: FDA-Public Use
  Company Number: US-PFIZER INC-2011147594

PATIENT
  Sex: Female
  Weight: 56.69 kg

DRUGS (9)
  1. CHANTIX [Suspect]
     Dosage: UNK
     Route: 048
     Dates: start: 20110601, end: 20110625
  2. HYDROCHLOROTHIAZIDE [Concomitant]
     Dosage: UNK, DAILY
  3. LOVASTATIN [Concomitant]
     Dosage: UNK, DAILY
  4. NEURONTIN [Concomitant]
     Dosage: 300 MG, 2X/DAY
  5. TRAMADOL [Concomitant]
     Dosage: 50 MG, 3X/DAY
  6. METOPROLOL [Concomitant]
     Dosage: UNK
  7. FOSAMAX [Concomitant]
     Indication: BONE DENSITY ABNORMAL
     Dosage: UNK,WEEKLY
     Route: 048
  8. BACTRIM [Concomitant]
     Dosage: UNK, DAILY
     Route: 048
  9. CLARITIN [Concomitant]
     Indication: HYPERSENSITIVITY
     Dosage: UNK, DAILY

REACTIONS (2)
  - VOMITING [None]
  - NAUSEA [None]
